FAERS Safety Report 5186716-0 (Version None)
Quarter: 2006Q4

REPORT INFORMATION
  Report Type: 
  Country: None (occurrence: None)
  Receive Date: 20061213
  Receipt Date: 20061202
  Transmission Date: 20070319
  Serious: Yes (Hospitalization)
  Sender: FDA-Public Use
  Company Number: MEDI-0005180

PATIENT
  Age: 5 Month
  Sex: Male
  Weight: 7.7111 kg

DRUGS (1)
  1. SYNAGIS [Suspect]
     Indication: ANTIVIRAL PROPHYLAXIS
     Dosage: 117 MG, INTRAMUSCULAR
     Route: 030
     Dates: start: 20061031, end: 20061031

REACTIONS (8)
  - DIARRHOEA [None]
  - DYSPNOEA [None]
  - LUNG HYPERINFLATION [None]
  - ORAL MUCOSAL BLISTERING [None]
  - RASH [None]
  - RETCHING [None]
  - SINUSITIS [None]
  - WHITE BLOOD CELL COUNT INCREASED [None]
